FAERS Safety Report 9679954 (Version 1)
Quarter: 2013Q4

REPORT INFORMATION
  Report Type: Spontaneous
  Country: AU (occurrence: AU)
  Receive Date: 20131110
  Receipt Date: 20131110
  Transmission Date: 20140711
  Serious: Yes (Death)
  Sender: FDA-Public Use
  Company Number: AU-ROCHE-1301511

PATIENT
  Age: 66 Year
  Sex: 0

DRUGS (1)
  1. ACTILYSE [Suspect]
     Indication: CEREBRAL INFARCTION
     Route: 065
     Dates: start: 20100628

REACTIONS (1)
  - Cerebral infarction [Fatal]
